FAERS Safety Report 4604411-0 (Version None)
Quarter: 2005Q1

REPORT INFORMATION
  Report Type: 
  Country: None (occurrence: None)
  Receive Date: 20050309
  Receipt Date: 20050309
  Transmission Date: 20050727
  Serious: Yes (Life-Threatening)
  Sender: FDA-Public Use
  Company Number: None

PATIENT
  Age: 61 Year
  Sex: Female
  Weight: 48.9885 kg

DRUGS (3)
  1. PROTONIX [Suspect]
     Indication: GASTRITIS
     Dosage: ONE PO QD
     Route: 048
     Dates: start: 20030521, end: 20030605
  2. PROTONIX [Suspect]
     Indication: IRRITABLE BOWEL SYNDROME
     Dosage: ONE PO QD
     Route: 048
     Dates: start: 20030521, end: 20030605
  3. VALIUM [Concomitant]

REACTIONS (8)
  - ABNORMAL BEHAVIOUR [None]
  - CRYING [None]
  - FLAT AFFECT [None]
  - MUSCLE SPASMS [None]
  - PANIC ATTACK [None]
  - PARANOIA [None]
  - SUICIDAL IDEATION [None]
  - SUICIDE ATTEMPT [None]
